FAERS Safety Report 23069125 (Version 4)
Quarter: 2024Q1

REPORT INFORMATION
  Report Type: Report from Study
  Country: US (occurrence: US)
  Receive Date: 20231016
  Receipt Date: 20240111
  Transmission Date: 20240409
  Serious: Yes (Other)
  Sender: FDA-Public Use
  Company Number: US-PFIZER INC-202300312048

PATIENT
  Age: 71 Year
  Sex: Female

DRUGS (2)
  1. VYNDAMAX [Suspect]
     Active Substance: TAFAMIDIS
     Dosage: 61 MG, 1X/DAY
     Route: 048
  2. VYNDAMAX [Suspect]
     Active Substance: TAFAMIDIS
     Dosage: 61 MG, DAILY
     Route: 048

REACTIONS (6)
  - Monoplegia [Unknown]
  - Peripheral swelling [Not Recovered/Not Resolved]
  - Fall [Unknown]
  - Carpal tunnel syndrome [Unknown]
  - Hypoaesthesia [Unknown]
  - Intentional dose omission [Unknown]
